FAERS Safety Report 9160538 (Version 2)
Quarter: 2013Q2

REPORT INFORMATION
  Report Type: Spontaneous
  Country: KR (occurrence: None)
  Receive Date: 20130220
  Receipt Date: 20130521
  Transmission Date: 20140414
  Serious: Yes (Hospitalization, Other)
  Sender: FDA-Public Use
  Company Number: JP-2013-10343

PATIENT
  Age: 77 Year
  Sex: Female
  Weight: 70 kg

DRUGS (13)
  1. CILOSTAZOL [Suspect]
     Indication: CORONARY ARTERY DISEASE
     Route: 048
     Dates: start: 20110114
  2. CILOSTAZOL [Suspect]
     Indication: CORONARY ARTERIAL STENT INSERTION
     Route: 048
     Dates: start: 20110114
  3. ASPIRIN [Suspect]
     Indication: CORONARY ARTERY DISEASE
     Route: 048
     Dates: start: 20110115
  4. ASPIRIN [Suspect]
     Indication: CORONARY ARTERIAL STENT INSERTION
     Route: 048
     Dates: start: 20110115
  5. CLOPIDOGREL [Suspect]
     Indication: CORONARY ARTERY DISEASE
     Route: 048
     Dates: start: 20110115
  6. CLOPIDOGREL [Suspect]
     Indication: CORONARY ARTERIAL STENT INSERTION
     Route: 048
     Dates: start: 20110115
  7. TRITACE (RAMIPRIL) [Concomitant]
  8. LIPILOU (ATORVASTATIN CE) [Concomitant]
  9. MUCOSTA (REBAMIPIDE) [Concomitant]
  10. TYLENOL ER (PARACETAMOL) [Concomitant]
  11. ALPRAZOLAM (ALPRAZOLAM) [Concomitant]
  12. MOLSITON (MOLSIDOMINE) [Concomitant]
  13. NIFEDSOL NIFEDIPINE) [Concomitant]

REACTIONS (5)
  - Dyspnoea [None]
  - Face oedema [None]
  - Palpitations [None]
  - Diabetes mellitus [None]
  - Cushing^s syndrome [None]
